FAERS Safety Report 9039355 (Version 1)
Quarter: 2013Q1

REPORT INFORMATION
  Report Type: Spontaneous
  Country: US (occurrence: None)
  Receive Date: 20130123
  Receipt Date: 20130123
  Transmission Date: 20140127
  Serious: Yes (Hospitalization)
  Sender: FDA-Public Use
  Company Number: None

PATIENT
  Age: 84 Year
  Sex: Male
  Weight: 77 kg

DRUGS (1)
  1. XARELTO [Suspect]
     Indication: ATRIAL FIBRILLATION
     Route: 048
     Dates: start: 20121224, end: 20130101

REACTIONS (7)
  - Haematemesis [None]
  - Rectal haemorrhage [None]
  - Hypotension [None]
  - Hypovolaemic shock [None]
  - Haemorrhagic anaemia [None]
  - Deep vein thrombosis [None]
  - Thrombosis in device [None]
